FAERS Safety Report 19872125 (Version 1)
Quarter: 2021Q3

REPORT INFORMATION
  Report Type: Spontaneous
  Country: US (occurrence: US)
  Receive Date: 20210923
  Receipt Date: 20210923
  Transmission Date: 20211014
  Serious: No
  Sender: FDA-Public Use
  Company Number: US-AVET LIFESCIENCES LTD-2021-AVET-000018

PATIENT

DRUGS (4)
  1. ROBAXIN [Concomitant]
     Active Substance: METHOCARBAMOL
     Dosage: UNK
  2. ACETAZOLAMIDE. [Suspect]
     Active Substance: ACETAZOLAMIDE
     Indication: IDIOPATHIC INTRACRANIAL HYPERTENSION
     Dosage: 500 MILLIGRAM, BID
     Route: 048
  3. SYNTHROID [Concomitant]
     Active Substance: LEVOTHYROXINE SODIUM
     Dosage: UNK
  4. TYLENOL [Concomitant]
     Active Substance: ACETAMINOPHEN
     Dosage: UNK

REACTIONS (4)
  - Off label use [Unknown]
  - Burning sensation [Recovered/Resolved]
  - Pruritus [Recovered/Resolved]
  - Rash [Recovered/Resolved]
